FAERS Safety Report 6750978-6 (Version None)
Quarter: 2010Q2

REPORT INFORMATION
  Report Type: 
  Country: None (occurrence: None)
  Receive Date: 20100602
  Receipt Date: 20100602
  Transmission Date: 20101027
  Serious: Yes (Hospitalization)
  Sender: FDA-Public Use
  Company Number: None

PATIENT
  Age: 4 Year
  Sex: Male
  Weight: 15.8759 kg

DRUGS (1)
  1. TYLENOL CHILDREN'S JOHNSON + JOHNSON [Suspect]
     Indication: RHINORRHOEA
     Dosage: AS DIRECTED 1 DOSE GIVEN
     Dates: start: 20090831, end: 20090831

REACTIONS (2)
  - CONVULSION [None]
  - POISONING [None]
